FAERS Safety Report 8102313-9 (Version None)
Quarter: 2012Q1

REPORT INFORMATION
  Report Type: 
  Country: None (occurrence: None)
  Receive Date: 20120201
  Receipt Date: 20120126
  Transmission Date: 20120608
  Serious: No
  Sender: FDA-Public Use
  Company Number: US-PFIZER INC-2012022682

PATIENT
  Sex: Female
  Weight: 56.7 kg

DRUGS (1)
  1. PREMARIN [Suspect]
     Indication: DYSPAREUNIA
     Dosage: UNK, 3X/WEEK
     Route: 067
     Dates: start: 20060101

REACTIONS (2)
  - VULVOVAGINAL MYCOTIC INFECTION [None]
  - INAPPROPRIATE SCHEDULE OF DRUG ADMINISTRATION [None]
